FAERS Safety Report 10040318 (Version 1)
Quarter: 2014Q1

REPORT INFORMATION
  Report Type: Spontaneous
  Country: US (occurrence: US)
  Receive Date: 20140327
  Receipt Date: 20140327
  Transmission Date: 20141002
  Serious: Yes (Other)
  Sender: FDA-Public Use
  Company Number: US-B.I. PHARMACEUTICALS,INC./RIDGEFIELD-2014-BI-12612UK

PATIENT
  Age: 35 Year
  Sex: Male

DRUGS (2)
  1. FLOMAX CAPSULES [Suspect]
     Indication: PRODUCT USED FOR UNKNOWN INDICATION
     Route: 065
  2. IMMUNOTHERAPY [Concomitant]
     Route: 065
     Dates: start: 2012

REACTIONS (5)
  - Anaphylactic reaction [Unknown]
  - Vomiting [Unknown]
  - Face oedema [Unknown]
  - Lip oedema [Unknown]
  - Pharyngeal oedema [Unknown]
